FAERS Safety Report 4432614-7 (Version None)
Quarter: 2004Q3

REPORT INFORMATION
  Report Type: 
  Country: None (occurrence: None)
  Receive Date: 20040820
  Receipt Date: 20040811
  Transmission Date: 20050211
  Serious: No
  Sender: FDA-Public Use
  Company Number: 2004UW17182

PATIENT
  Sex: Male

DRUGS (1)
  1. IRESSA [Suspect]

REACTIONS (1)
  - CONVULSION [None]
